FAERS Safety Report 8592927-4 (Version None)
Quarter: 2012Q3

REPORT INFORMATION
  Report Type: 
  Country: None (occurrence: None)
  Receive Date: 20120814
  Receipt Date: 20120730
  Transmission Date: 20120928
  Serious: Yes (Hospitalization)
  Sender: FDA-Public Use
  Company Number: DE-ROCHE-1093828

PATIENT
  Age: 66 Year
  Sex: Female
  Weight: 56 kg

DRUGS (34)
  1. CARBOPLATIN [Suspect]
     Indication: NON-SMALL CELL LUNG CANCER RECURRENT
     Dosage: MOST RECENT DOSE PRIOR TO SAE: 11/JUL/2012.
     Route: 042
     Dates: start: 20120326
  2. DEXAMETHASONE [Concomitant]
     Indication: NAUSEA
     Route: 048
     Dates: start: 20120316, end: 20120723
  3. RANITIDINE HCL [Concomitant]
     Indication: PREMEDICATION
     Dosage: 1 AMPULE
     Route: 042
     Dates: start: 20120326
  4. ZOFRAN [Concomitant]
     Indication: PREMEDICATION
     Route: 042
     Dates: start: 20120326
  5. AVASTIN [Suspect]
     Indication: NON-SMALL CELL LUNG CANCER RECURRENT
     Dosage: MOST RECENT DOSE PRIOR TO SAE: 11/JUL/2012.
     Route: 042
     Dates: start: 20120326
  6. DEXAMETHASONE [Concomitant]
     Route: 048
     Dates: start: 20120325
  7. OXAZEPAM [Concomitant]
     Indication: DEPRESSION
     Route: 048
  8. ZOFRAN [Concomitant]
     Route: 048
     Dates: start: 20120327
  9. XIMOVAN [Concomitant]
     Indication: PROPHYLAXIS
     Route: 048
     Dates: start: 20120710, end: 20120711
  10. POTASSIUM CHLORIDE [Concomitant]
     Indication: HYPOKALAEMIA
     Route: 042
     Dates: start: 20120717, end: 20120717
  11. LEVOTHYROXINE SODIUM [Concomitant]
     Indication: HYPERTHYROIDISM
     Route: 048
  12. PANTOPRAZOLE [Concomitant]
     Indication: GASTROOESOPHAGEAL REFLUX DISEASE
     Route: 048
  13. PERENTEROL FORTE [Concomitant]
     Indication: DIARRHOEA
     Route: 048
     Dates: start: 20120604, end: 20120702
  14. LASIX [Concomitant]
     Indication: PERICARDIAL EFFUSION
     Route: 042
     Dates: start: 20120716, end: 20120716
  15. PLACEBO [Suspect]
     Indication: NON-SMALL CELL LUNG CANCER RECURRENT
  16. PACLITAXEL [Suspect]
     Indication: NON-SMALL CELL LUNG CANCER RECURRENT
     Dosage: MOST RECENT DOSE PRIOR TO SAE: 11/JUL/2012.
     Route: 042
     Dates: start: 20120326
  17. KALIUM [Concomitant]
     Indication: HYPOKALAEMIA
     Route: 048
     Dates: start: 20120703, end: 20120715
  18. SPIRONOLACTONE [Concomitant]
     Indication: PERICARDIAL EFFUSION
     Route: 048
     Dates: start: 20120530, end: 20120702
  19. NOVALGIN [Concomitant]
     Indication: ABDOMINAL PAIN
     Dosage: 20 DROPS
     Route: 048
     Dates: start: 20120328, end: 20120702
  20. CLEMASTINE FUMARATE [Concomitant]
     Indication: PREMEDICATION
     Dosage: 1 AMPULE
     Route: 042
     Dates: start: 20120326
  21. KALIUM [Concomitant]
     Route: 048
     Dates: start: 20120716, end: 20120723
  22. LASIX [Concomitant]
     Route: 042
     Dates: start: 20120717, end: 20120717
  23. PAROXETINE [Concomitant]
     Indication: DEPRESSION
     Route: 048
  24. RAMIPRIL [Concomitant]
     Indication: HYPERTENSION
     Route: 048
     Dates: end: 20120702
  25. OXYGEN [Concomitant]
     Indication: DYSPNOEA
     Dosage: ROUTE: INHALED
     Dates: start: 20120316
  26. TORSEMIDE [Concomitant]
     Indication: HYPERTENSION
     Route: 048
     Dates: start: 20120530, end: 20120703
  27. BISOPROLOL FUMARATE [Concomitant]
     Indication: HYPERTENSION
     Route: 048
  28. SPIRONOLACTONE [Concomitant]
     Indication: PULMONARY OEDEMA
     Route: 048
     Dates: start: 20120724
  29. TORSEMIDE [Concomitant]
     Route: 048
     Dates: start: 20120719, end: 20120723
  30. OPTIPECT [Concomitant]
     Indication: COUGH
     Dosage: 20 DROPS
     Route: 048
     Dates: start: 20120316, end: 20120702
  31. TAVOR (GERMANY) [Concomitant]
     Indication: DEPRESSION
     Route: 048
     Dates: end: 20120702
  32. METOCLOPRAMIDE [Concomitant]
     Indication: NAUSEA
     Dosage: 20 DROPS
     Route: 048
     Dates: start: 20120716, end: 20120716
  33. TORSEMIDE [Concomitant]
     Route: 048
     Dates: start: 20120704, end: 20120718
  34. RINGER SOLUTION [Concomitant]
     Route: 042
     Dates: start: 20120717, end: 20120717

REACTIONS (2)
  - OEDEMA DUE TO CARDIAC DISEASE [None]
  - HYPERTENSIVE CRISIS [None]
